FAERS Safety Report 8563837-3 (Version None)
Quarter: 2012Q3

REPORT INFORMATION
  Report Type: 
  Country: None (occurrence: None)
  Receive Date: 20120726
  Receipt Date: 20120726
  Transmission Date: 20120928
  Serious: Yes (Other)
  Sender: FDA-Public Use
  Company Number: None

PATIENT
  Sex: Female
  Weight: 93.441 kg

DRUGS (5)
  1. VERAPAMIL [Concomitant]
  2. GLIMEPIRIDE [Concomitant]
  3. LIPITOR [Suspect]
     Dosage: 10 MG DAILY
  4. ENALAPRIL MALEATE [Concomitant]
  5. LASIX [Concomitant]

REACTIONS (2)
  - PRODUCT SUBSTITUTION ISSUE [None]
  - NAUSEA [None]
